FAERS Safety Report 7593719-5 (Version None)
Quarter: 2011Q3

REPORT INFORMATION
  Report Type: 
  Country: None (occurrence: None)
  Receive Date: 20110706
  Receipt Date: 20110622
  Transmission Date: 20111222
  Serious: Yes (Hospitalization, Other)
  Sender: FDA-Public Use
  Company Number: PHHY2011US21119

PATIENT
  Sex: Male
  Weight: 52 kg

DRUGS (2)
  1. EXJADE [Suspect]
     Dosage: 500 MG, DAILY
     Route: 048
  2. EXJADE [Suspect]
     Indication: SICKLE CELL ANAEMIA
     Dosage: 2000 MG, DAILY
     Route: 048
     Dates: start: 20070125, end: 20110105

REACTIONS (2)
  - SICKLE CELL ANAEMIA WITH CRISIS [None]
  - WEIGHT DECREASED [None]
